FAERS Safety Report 10638959 (Version 1)
Quarter: 2014Q4

REPORT INFORMATION
  Report Type: Spontaneous
  Country: US (occurrence: US)
  Receive Date: 20141208
  Receipt Date: 20141208
  Transmission Date: 20150529
  Serious: Yes (Hospitalization, Other)
  Sender: FDA-Public Use
  Company Number: US-GLAXOSMITHKLINE-US2014031599

PATIENT
  Sex: Female

DRUGS (1)
  1. LAMICTAL [Suspect]
     Active Substance: LAMOTRIGINE
     Indication: EPILEPSY
     Dosage: 200 MG, BID
     Route: 048
     Dates: start: 199712

REACTIONS (5)
  - Urinary tract infection [Recovered/Resolved]
  - Exposure during pregnancy [Unknown]
  - Gestational diabetes [Recovered/Resolved]
  - Gestational hypertension [Not Recovered/Not Resolved]
  - Live birth [Unknown]
